FAERS Safety Report 5814505-X (Version None)
Quarter: 2008Q3

REPORT INFORMATION
  Report Type: 
  Country: None (occurrence: None)
  Receive Date: 20080715
  Receipt Date: 20080630
  Transmission Date: 20090109
  Serious: Yes (Death, Other)
  Sender: FDA-Public Use
  Company Number: 2008S1011499

PATIENT
  Age: 76 Year
  Sex: Female

DRUGS (14)
  1. AZATHIOPRINE [Suspect]
     Indication: COLITIS ULCERATIVE
  2. CYCLOSPORINE [Suspect]
     Indication: PUSTULAR PSORIASIS
  3. METHOTREXATE [Suspect]
     Indication: PUSTULAR PSORIASIS
     Dosage: ORAL
     Route: 048
     Dates: start: 19980307
  4. REMICADE [Suspect]
     Indication: PUSTULAR PSORIASIS
     Dosage: 200 MG; INTRAVENOUS
     Route: 042
     Dates: start: 20021206, end: 20040223
  5. ACITRETIN (ACITRETIN) (CON.) [Concomitant]
  6. ASPIRIN (ACETYLSALICYLIC ACID) (CON.) [Concomitant]
  7. BALSALAZIDE (BALSALAZIDE) (CON.) [Concomitant]
  8. BECLAZONE (BECLOMETASONE DIPROPIONATE) (CON.) [Concomitant]
  9. BECLOBRATE (BECLOBRATE) (CON.) [Concomitant]
  10. BETNOVATE /0008501/ (BETAMETHASONE) (CON.) [Concomitant]
  11. FUROSEMIDE (FUROSEMIDE) (CON.) [Concomitant]
  12. IPRATROPIUM (IPRATROPIUM) (CON.) [Concomitant]
  13. LANSOPRAZOLE (LANSOPRAZOLE) (CON.) [Concomitant]
  14. LATANOPROST (LATANOPROST) (CON.) [Concomitant]

REACTIONS (6)
  - FATIGUE [None]
  - INTERSTITIAL LUNG DISEASE [None]
  - JAUNDICE [None]
  - NAUSEA [None]
  - RENAL IMPAIRMENT [None]
  - T-CELL LYMPHOMA [None]
